FAERS Safety Report 25987317 (Version 1)
Quarter: 2025Q4

REPORT INFORMATION
  Report Type: Spontaneous
  Country: TR (occurrence: TR)
  Receive Date: 20251103
  Receipt Date: 20251103
  Transmission Date: 20260117
  Serious: Yes (Other)
  Sender: ALKEM
  Company Number: TR-ALKEM LABORATORIES LIMITED-TR-ALKEM-2025-03019

PATIENT

DRUGS (1)
  1. IBUPROFEN [Suspect]
     Active Substance: IBUPROFEN
     Indication: Drug provocation test
     Dosage: UNK
     Route: 065

REACTIONS (7)
  - Anaphylactic reaction [Unknown]
  - Angioedema [Unknown]
  - Cyanosis [Unknown]
  - Decreased activity [Unknown]
  - Anxiety [Unknown]
  - Vertigo [Unknown]
  - Pruritus [Unknown]
